FAERS Safety Report 21591767 (Version 6)
Quarter: 2022Q4

REPORT INFORMATION
  Report Type: Report from Study
  Country: US (occurrence: US)
  Receive Date: 20221114
  Receipt Date: 20221229
  Transmission Date: 20230112
  Serious: No
  Sender: FDA-Public Use
  Company Number: US-ABBVIE-22K-163-4516737-00

PATIENT
  Sex: Female

DRUGS (3)
  1. IMBRUVICA [Suspect]
     Active Substance: IBRUTINIB
     Indication: Diffuse large B-cell lymphoma
     Route: 048
     Dates: start: 202110
  2. IMBRUVICA [Suspect]
     Active Substance: IBRUTINIB
     Indication: Diffuse large B-cell lymphoma
     Dosage: TIME INTERVAL: 0.33333333 DAYS
     Route: 048
     Dates: start: 20220223
  3. ACYCLOVIR [Suspect]
     Active Substance: ACYCLOVIR
     Indication: Product used for unknown indication
     Route: 065
     Dates: end: 2022

REACTIONS (15)
  - Neuropathy peripheral [Unknown]
  - Gilbert^s syndrome [Unknown]
  - Petechiae [Unknown]
  - Palpitations [Unknown]
  - Pharyngeal disorder [Unknown]
  - Oral pain [Unknown]
  - Insomnia [Unknown]
  - Pruritus [Unknown]
  - Asthenia [Unknown]
  - Platelet count decreased [Unknown]
  - Rash macular [Unknown]
  - Groin pain [Unknown]
  - Back pain [Unknown]
  - Pain in extremity [Unknown]
  - Oropharyngeal pain [Unknown]
